FAERS Safety Report 21216431 (Version 1)
Quarter: 2022Q3

REPORT INFORMATION
  Report Type: Spontaneous
  Country: US (occurrence: None)
  Receive Date: 20220815
  Receipt Date: 20220815
  Transmission Date: 20221027
  Serious: Yes (Other)
  Sender: FDA-Public Use
  Company Number: None

PATIENT
  Sex: 0

DRUGS (2)
  1. LUMIGAN [Suspect]
     Active Substance: BIMATOPROST
  2. VYZULTA [Suspect]
     Active Substance: LATANOPROSTENE BUNOD

REACTIONS (3)
  - Ocular hyperaemia [None]
  - Eye pruritus [None]
  - Drug ineffective [None]
